FAERS Safety Report 7552302-8 (Version None)
Quarter: 2011Q2

REPORT INFORMATION
  Report Type: 
  Country: None (occurrence: None)
  Receive Date: 20110616
  Receipt Date: 20110603
  Transmission Date: 20111010
  Serious: Yes (Other)
  Sender: FDA-Public Use
  Company Number: FR-EISAI INC-E2020-09160-CLI-FR

PATIENT
  Sex: Male
  Weight: 75 kg

DRUGS (2)
  1. DONEPEZIL HCL [Suspect]
     Route: 048
     Dates: start: 20110428, end: 20110428
  2. SCOPOLAMINE [Suspect]
     Route: 058
     Dates: start: 20110428, end: 20110428

REACTIONS (2)
  - AFFECTIVE DISORDER [None]
  - SUICIDAL IDEATION [None]
